FAERS Safety Report 6886002-4 (Version None)
Quarter: 2010Q3

REPORT INFORMATION
  Report Type: 
  Country: None (occurrence: None)
  Receive Date: 20100729
  Receipt Date: 20081120
  Transmission Date: 20110219
  Serious: No
  Sender: FDA-Public Use
  Company Number: US-PFIZER INC-2008098405

PATIENT
  Sex: Female
  Weight: 63.6 kg

DRUGS (3)
  1. CELEBREX [Suspect]
     Indication: SWELLING
     Dates: start: 20081119
  2. CELEBREX [Suspect]
     Indication: MUSCULOSKELETAL PAIN
  3. ULTRAM [Suspect]
     Indication: MUSCULOSKELETAL PAIN
     Dates: start: 20081119

REACTIONS (3)
  - MEDICATION ERROR [None]
  - NAUSEA [None]
  - SOMNOLENCE [None]
